FAERS Safety Report 19604650 (Version 1)
Quarter: 2021Q3

REPORT INFORMATION
  Report Type: Spontaneous
  Country: TH (occurrence: TH)
  Receive Date: 20210723
  Receipt Date: 20210723
  Transmission Date: 20211014
  Serious: Yes (Death, Hospitalization, Other)
  Sender: FDA-Public Use
  Company Number: TH-MSNLABS-2021MSNLIT00257

PATIENT

DRUGS (4)
  1. MEROPENEM. [Suspect]
     Active Substance: MEROPENEM
     Indication: PNEUMONIA BACTERIAL
     Route: 042
  2. CAPECITABINE TABLETS 500 MG [Suspect]
     Active Substance: CAPECITABINE
     Indication: ADENOCARCINOMA
     Route: 065
  3. CAPECITABINE TABLETS 500 MG [Suspect]
     Active Substance: CAPECITABINE
     Route: 065
  4. MEROPENEM. [Suspect]
     Active Substance: MEROPENEM
     Indication: SEPSIS

REACTIONS (4)
  - Sepsis [Fatal]
  - Acute myeloid leukaemia [Unknown]
  - Pneumonia bacterial [Unknown]
  - Palmar-plantar erythrodysaesthesia syndrome [Unknown]
